FAERS Safety Report 10351442 (Version 1)
Quarter: 2014Q3

REPORT INFORMATION
  Report Type: Spontaneous
  Country: US (occurrence: US)
  Receive Date: 20140730
  Receipt Date: 20140730
  Transmission Date: 20150326
  Serious: Yes (Death)
  Sender: FDA-Public Use
  Company Number: US-BRISTOL-MYERS SQUIBB COMPANY-21251012

PATIENT

DRUGS (1)
  1. YERVOY [Suspect]
     Active Substance: IPILIMUMAB
     Dosage: YERVOY INJ

REACTIONS (1)
  - Death [Fatal]
